FAERS Safety Report 8409574-7 (Version None)
Quarter: 2012Q2

REPORT INFORMATION
  Report Type: 
  Country: None (occurrence: None)
  Receive Date: 20120531
  Receipt Date: 20120531
  Transmission Date: 20120825
  Serious: Yes (Hospitalization)
  Sender: FDA-Public Use
  Company Number: None

PATIENT
  Age: 48 Year
  Sex: Male
  Weight: 93.3 kg

DRUGS (1)
  1. CEFTRIAXONE [Suspect]
     Indication: UPPER RESPIRATORY TRACT INFECTION
     Dosage: 1 GM EVERY DAY IV
     Route: 042
     Dates: start: 20120516, end: 20120523

REACTIONS (1)
  - RASH [None]
